FAERS Safety Report 4973430-7 (Version None)
Quarter: 2006Q2

REPORT INFORMATION
  Report Type: 
  Country: None (occurrence: None)
  Receive Date: 20060413
  Receipt Date: 20060413
  Transmission Date: 20061013
  Serious: Yes (Hospitalization)
  Sender: FDA-Public Use
  Company Number: None

PATIENT
  Sex: Male
  Weight: 73.4827 kg

DRUGS (6)
  1. ALIMTA [Suspect]
     Indication: NON-SMALL CELL LUNG CANCER
     Dosage: 500 MG/M2  ONCE EVERY 21  IV
     Route: 042
     Dates: start: 20060327
  2. VELCADE [Suspect]
     Dosage: 1.3 MG/M2   DAY 1,4,8,11  IV
     Route: 042
     Dates: start: 20060327, end: 20060406
  3. OXYCONTIN [Concomitant]
  4. MEGACE [Concomitant]
  5. ATIVAN [Concomitant]
  6. ROXANOL [Concomitant]

REACTIONS (7)
  - ABDOMINAL PAIN [None]
  - ALANINE AMINOTRANSFERASE INCREASED [None]
  - ASPARTATE AMINOTRANSFERASE INCREASED [None]
  - CHEST DISCOMFORT [None]
  - DEHYDRATION [None]
  - NAUSEA [None]
  - VOMITING [None]
